FAERS Safety Report 11198982 (Version 1)
Quarter: 2015Q2

REPORT INFORMATION
  Report Type: Spontaneous
  Country: US (occurrence: US)
  Receive Date: 20150618
  Receipt Date: 20150618
  Transmission Date: 20150821
  Serious: No
  Sender: FDA-Public Use
  Company Number: US-TEVA-497820USA

PATIENT
  Age: 60 Year
  Sex: Female
  Weight: 52.21 kg

DRUGS (5)
  1. VITAMIN D [Concomitant]
     Active Substance: CHOLECALCIFEROL
  2. CIPROFLOXACIN. [Suspect]
     Active Substance: CIPROFLOXACIN
     Indication: URINARY TRACT INFECTION
     Dosage: 1000 MILLIGRAM DAILY;
     Route: 048
     Dates: start: 20140702
  3. CRANBERRY. [Concomitant]
     Active Substance: CRANBERRY
  4. AMPYRA [Suspect]
     Active Substance: DALFAMPRIDINE
     Dosage: 20 MILLIGRAM DAILY;
     Route: 048
     Dates: start: 20140613
  5. DIMETHYL FUMARATE [Concomitant]
     Active Substance: DIMETHYL FUMARATE

REACTIONS (1)
  - Influenza like illness [Not Recovered/Not Resolved]

NARRATIVE: CASE EVENT DATE: 20140702
